FAERS Safety Report 7635554-5 (Version None)
Quarter: 2011Q3

REPORT INFORMATION
  Report Type: 
  Country: None (occurrence: None)
  Receive Date: 20110718
  Receipt Date: 20110712
  Transmission Date: 20111222
  Serious: Yes (Hospitalization)
  Sender: FDA-Public Use
  Company Number: 2011CH0223

PATIENT
  Age: 27 Year
  Sex: Female

DRUGS (5)
  1. INDOMETHACIN [Concomitant]
  2. ESOMEPRAZOLE (ESOMEPRAZOLE) [Concomitant]
  3. PREDNISOLONE [Concomitant]
  4. CALCIUM CARBONATE WITH VTIAMIN D3(CALCIUM CARBONATE, VITAMIN D3) [Concomitant]
  5. ANAKINRA (ANAKINRA) [Suspect]
     Indication: STILL'S DISEASE ADULT ONSET

REACTIONS (10)
  - PNEUMONIA LEGIONELLA [None]
  - GLOMERULONEPHRITIS [None]
  - ANXIETY [None]
  - BLOOD PRESSURE INCREASED [None]
  - SINUS TACHYCARDIA [None]
  - RENAL FAILURE ACUTE [None]
  - VENOUS PRESSURE JUGULAR INCREASED [None]
  - REFUSAL OF TREATMENT BY PATIENT [None]
  - SOMNOLENCE [None]
  - KIDNEY FIBROSIS [None]
